FAERS Safety Report 5482217-0 (Version None)
Quarter: 2007Q4

REPORT INFORMATION
  Report Type: 
  Country: None (occurrence: None)
  Receive Date: 20071011
  Receipt Date: 20071002
  Transmission Date: 20080405
  Serious: Yes (Other)
  Sender: FDA-Public Use
  Company Number: AU-ROCHE-522667

PATIENT
  Age: 27 Year
  Sex: Male

DRUGS (12)
  1. CEFTRIAXONE SODIUM [Suspect]
     Indication: DRUG USE FOR UNKNOWN INDICATION
     Route: 065
     Dates: start: 20070504, end: 20070506
  2. BACTRIM [Suspect]
     Indication: DRUG USE FOR UNKNOWN INDICATION
     Dosage: DRUG NAME REPORTED AS BACTRIM DS.
     Route: 048
     Dates: start: 20070504, end: 20070506
  3. RULIDE [Suspect]
     Indication: DRUG USE FOR UNKNOWN INDICATION
     Route: 048
     Dates: start: 20070504, end: 20070506
  4. CIPROFLOXACIN [Suspect]
     Indication: DRUG USE FOR UNKNOWN INDICATION
     Route: 048
     Dates: start: 20070506
  5. CYCLOSPORINE [Concomitant]
  6. MYCOPHENOLATE MOFETIL [Concomitant]
  7. FOLIC ACID [Concomitant]
  8. CALTRATE [Concomitant]
  9. CHOLECALCIFEROL [Concomitant]
  10. PREDNISOLONE [Concomitant]
  11. OMEPRAZOLE [Concomitant]
  12. OXYCONTIN [Concomitant]

REACTIONS (1)
  - ANGIOEDEMA [None]
